FAERS Safety Report 19587732 (Version 1)
Quarter: 2021Q3

REPORT INFORMATION
  Report Type: Spontaneous
  Country: GB (occurrence: CN)
  Receive Date: 20210721
  Receipt Date: 20210721
  Transmission Date: 20211014
  Serious: Yes (Other)
  Sender: FDA-Public Use
  Company Number: CN-ELI_LILLY_AND_COMPANY-CN202107005441

PATIENT
  Age: 73 Year
  Sex: Male

DRUGS (4)
  1. OXALIPLATIN. [Suspect]
     Active Substance: OXALIPLATIN
     Indication: ADENOCARCINOMA GASTRIC
     Dosage: UNK, GIVEN ONCE EVERY 3 WEEKS
     Route: 042
     Dates: start: 201902
  2. GIMERACIL;OTERACIL;TEGAFUR [Suspect]
     Active Substance: GIMERACIL\OTERACIL\TEGAFUR
     Indication: ADENOCARCINOMA GASTRIC
     Dosage: UNK UNK, GIVEN ONCE EVERY 3 WEEKS
     Route: 042
     Dates: start: 201902
  3. TRASTUZUMAB. [Suspect]
     Active Substance: TRASTUZUMAB
     Indication: SIGNET-RING CELL CARCINOMA
     Dosage: UNK, UNKNOWN
     Route: 042
     Dates: start: 201902
  4. GEMCITABINE HYDROCHLORIDE. [Suspect]
     Active Substance: GEMCITABINE HYDROCHLORIDE
     Indication: BLADDER CANCER
     Dosage: UNK, ONCE?WEEKLY GEMCITABINE?ONLY BLADDER PERFUSION
     Route: 065
     Dates: start: 2019

REACTIONS (5)
  - Toxicity to various agents [Unknown]
  - Drug intolerance [Unknown]
  - Myelosuppression [Unknown]
  - Nausea [Unknown]
  - Vomiting [Unknown]

NARRATIVE: CASE EVENT DATE: 2019
